FAERS Safety Report 18688460 (Version 5)
Quarter: 2021Q1

REPORT INFORMATION
  Report Type: Spontaneous
  Country: US (occurrence: US)
  Receive Date: 20201231
  Receipt Date: 20210117
  Transmission Date: 20210419
  Serious: Yes (Death, Other)
  Sender: FDA-Public Use
  Company Number: US-009507513-2012USA011868

PATIENT
  Age: 80 Year
  Sex: Male

DRUGS (16)
  1. ZERBAXA [Suspect]
     Active Substance: CEFTOLOZANE SULFATE\TAZOBACTAM SODIUM
     Indication: PSEUDOMONAS INFECTION
     Dosage: 18 DOSES TOTALLY
     Dates: start: 20200501, end: 20200507
  2. FOSAMAX [Concomitant]
     Active Substance: ALENDRONATE SODIUM
     Route: 048
  3. PREDNISONE. [Concomitant]
     Active Substance: PREDNISONE
  4. DICLOFENAC [Concomitant]
     Active Substance: DICLOFENAC
     Dosage: TWICE A DAY
     Route: 048
  5. FUROSEMIDE. [Concomitant]
     Active Substance: FUROSEMIDE
  6. RAMIPRIL. [Concomitant]
     Active Substance: RAMIPRIL
  7. TRELEGY ELLIPTA [Concomitant]
     Active Substance: FLUTICASONE FUROATE\UMECLIDINIUM BROMIDE\VILANTEROL TRIFENATATE
  8. GABAPENTIN. [Concomitant]
     Active Substance: GABAPENTIN
  9. MORPHINE [Concomitant]
     Active Substance: MORPHINE
  10. POTASSIUM CHLORIDE. [Concomitant]
     Active Substance: POTASSIUM CHLORIDE
  11. OXYCODONE [Concomitant]
     Active Substance: OXYCODONE
  12. TAMSULOSIN HYDROCHLORIDE. [Concomitant]
     Active Substance: TAMSULOSIN HYDROCHLORIDE
  13. SPIRONOLACTONE. [Concomitant]
     Active Substance: SPIRONOLACTONE
  14. MIRALAX [Concomitant]
     Active Substance: POLYETHYLENE GLYCOL 3350
  15. CYCLOSPORINE. [Concomitant]
     Active Substance: CYCLOSPORINE
  16. TRAMADOL HYDROCHLORIDE. [Concomitant]
     Active Substance: TRAMADOL HYDROCHLORIDE

REACTIONS (6)
  - Recalled product administered [Unknown]
  - Peripheral vascular disorder [Not Recovered/Not Resolved]
  - Product use in unapproved indication [Unknown]
  - Dysphagia [Unknown]
  - Death [Fatal]
  - Wound complication [Unknown]

NARRATIVE: CASE EVENT DATE: 202005
